FAERS Safety Report 4430085-8 (Version None)
Quarter: 2004Q3

REPORT INFORMATION
  Report Type: 
  Country: None (occurrence: None)
  Receive Date: 20040816
  Receipt Date: 20040729
  Transmission Date: 20050211
  Serious: Yes (Hospitalization)
  Sender: FDA-Public Use
  Company Number: F01200400948

PATIENT
  Age: 65 Year
  Sex: Male

DRUGS (9)
  1. (OXALIPLATIN) - SOLUTION - 130 MG/M2 [Suspect]
     Indication: COLON CANCER
     Dosage: 190 MG Q3W, INTRAVENOUS NOS; 2 HOURS
     Route: 042
     Dates: start: 20040407, end: 20040407
  2. (CAPECITABINE) - TABLET - 1000 MG/M2 [Suspect]
     Dosage: 1500 MG TWICE A DAY PER ORAL FROM D1 TO D15, Q3W, ORAL; 5 DAYS
     Route: 048
     Dates: start: 20040407, end: 20040417
  3. SODIUM CHLORIDE 0.9% [Concomitant]
  4. SODIUM CHLORIDE INJ [Concomitant]
  5. CALCIUM GLUCONATE [Concomitant]
  6. METOCLOPRAMIDE [Concomitant]
  7. DIMENHYDRINATE [Concomitant]
  8. NYSTATIN [Concomitant]
  9. OMEPRAZOLE [Concomitant]

REACTIONS (5)
  - ABDOMINAL PAIN [None]
  - DIARRHOEA [None]
  - GASTRITIS [None]
  - MUCOSAL INFLAMMATION [None]
  - RENAL FAILURE [None]
